FAERS Safety Report 21896909 (Version 1)
Quarter: 2023Q1

REPORT INFORMATION
  Report Type: Spontaneous
  Country: CA (occurrence: CA)
  Receive Date: 20230123
  Receipt Date: 20230123
  Transmission Date: 20230417
  Serious: Yes (Other)
  Sender: FDA-Public Use
  Company Number: None

PATIENT
  Age: 62 Year
  Sex: Female

DRUGS (5)
  1. METHOTREXATE [Suspect]
     Active Substance: METHOTREXATE
     Indication: Colitis ulcerative
     Route: 065
  2. INFLIXIMAB [Concomitant]
     Active Substance: INFLIXIMAB
     Indication: Colitis ulcerative
     Route: 042
  3. MESALAMINE [Concomitant]
     Active Substance: MESALAMINE
     Dosage: TABLET (DELAYED AND EXTENDED RELEASE)
  4. PREDNISONE [Concomitant]
     Active Substance: PREDNISONE
  5. VEDOLIZUMAB [Concomitant]
     Active Substance: VEDOLIZUMAB

REACTIONS (8)
  - Abdominal pain [Unknown]
  - Colitis [Unknown]
  - Condition aggravated [Unknown]
  - Flatulence [Unknown]
  - Frequent bowel movements [Unknown]
  - Haematochezia [Unknown]
  - Large intestinal ulcer [Unknown]
  - Off label use [Unknown]
